FAERS Safety Report 19312411 (Version 1)
Quarter: 2021Q2

REPORT INFORMATION
  Report Type: Other
  Country: CA (occurrence: CA)
  Receive Date: 20210527
  Receipt Date: 20210527
  Transmission Date: 20210717
  Serious: Yes (Other)
  Sender: FDA-Public Use
  Company Number: CA-APOTEX-2021AP012478

PATIENT
  Age: 64 Year
  Sex: Female

DRUGS (7)
  1. SIMPONI [Concomitant]
     Active Substance: GOLIMUMAB
     Indication: PRODUCT USED FOR UNKNOWN INDICATION
     Dosage: UNK (THERAPY DURATION 365 UNSPECIFIED UNIT)
     Route: 065
  2. METHOTREXATE. [Suspect]
     Active Substance: METHOTREXATE
     Dosage: UNK
     Route: 058
  3. PLAQUENIL [Concomitant]
     Active Substance: HYDROXYCHLOROQUINE SULFATE
     Indication: PRODUCT USED FOR UNKNOWN INDICATION
     Dosage: UNK (THERAPY DURATION 153 UNIT UNSPECIFIED)
     Route: 065
  4. SULFASALAZINE. [Concomitant]
     Active Substance: SULFASALAZINE
     Indication: PRODUCT USED FOR UNKNOWN INDICATION
     Dosage: UNK
     Route: 048
  5. LEFLUNOMIDE. [Suspect]
     Active Substance: LEFLUNOMIDE
     Dosage: UNK
     Route: 065
  6. CIMZIA [Concomitant]
     Active Substance: CERTOLIZUMAB PEGOL
     Indication: PRODUCT USED FOR UNKNOWN INDICATION
     Dosage: UNK (THERAPY DURATION 576 UNSPECIFIED UNIT)
     Route: 065
  7. PREDNISONE. [Concomitant]
     Active Substance: PREDNISONE
     Indication: PRODUCT USED FOR UNKNOWN INDICATION
     Dosage: UNK
     Route: 065

REACTIONS (12)
  - Rheumatoid arthritis [Unknown]
  - Neck pain [Unknown]
  - Drug intolerance [Unknown]
  - Headache [Unknown]
  - Back pain [Unknown]
  - Joint swelling [Unknown]
  - Discomfort [Unknown]
  - Drug ineffective [Unknown]
  - Diarrhoea [Unknown]
  - Arthralgia [Unknown]
  - Arthritis [Unknown]
  - Fatigue [Unknown]
